FAERS Safety Report 4596342-X (Version None)
Quarter: 2005Q1

REPORT INFORMATION
  Report Type: 
  Country: None (occurrence: None)
  Receive Date: 20050225
  Receipt Date: 20050210
  Transmission Date: 20050727
  Serious: Yes (Hospitalization)
  Sender: FDA-Public Use
  Company Number: 2004CG01724

PATIENT
  Age: 65 Year
  Sex: Female

DRUGS (2)
  1. XYLOCAINE W/ EPINEPHRINE [Suspect]
     Indication: LOCAL ANAESTHESIA
     Dosage: 7 ML ONCE SQ
     Dates: start: 20040901, end: 20040901
  2. SODIUM BICARBONATE [Suspect]
     Dosage: 250 ML ONCE SQ
     Dates: start: 20040901, end: 20040901

REACTIONS (2)
  - INJECTION SITE NECROSIS [None]
  - MEDICATION ERROR [None]
